FAERS Safety Report 15488714 (Version 2)
Quarter: 2018Q4

REPORT INFORMATION
  Report Type: Spontaneous
  Country: US (occurrence: US)
  Receive Date: 20181011
  Receipt Date: 20181019
  Transmission Date: 20190205
  Serious: No
  Sender: FDA-Public Use
  Company Number: US-GLAXOSMITHKLINE-US2018178862

PATIENT
  Age: 54 Year
  Sex: Female

DRUGS (1)
  1. FLONASE SENSIMIST ALLERGY RELIEF [Suspect]
     Active Substance: FLUTICASONE FUROATE
     Indication: HYPERSENSITIVITY
     Dosage: UNK
     Dates: start: 20180926

REACTIONS (6)
  - Drug effective for unapproved indication [Unknown]
  - Off label use [Unknown]
  - Product container issue [Unknown]
  - Product complaint [Unknown]
  - Incorrect route of product administration [Unknown]
  - Overdose [Unknown]
